FAERS Safety Report 14091824 (Version 5)
Quarter: 2018Q1

REPORT INFORMATION
  Report Type: Spontaneous
  Country: ZA (occurrence: ZA)
  Receive Date: 20171016
  Receipt Date: 20180313
  Transmission Date: 20180508
  Serious: Yes (Life-Threatening, Other)
  Sender: FDA-Public Use
  Company Number: PHHY2017ZA148191

PATIENT
  Sex: Male

DRUGS (4)
  1. RITALIN [Suspect]
     Active Substance: METHYLPHENIDATE HYDROCHLORIDE
     Indication: ATTENTION DEFICIT/HYPERACTIVITY DISORDER
     Dosage: 150 MG, PRN
     Route: 048
  2. RITALIN [Suspect]
     Active Substance: METHYLPHENIDATE HYDROCHLORIDE
     Indication: HYPERSENSITIVITY
     Dosage: 50 MG, QD (10 MG 5 TIMES PER DAY)
     Route: 065
  3. RITALIN [Suspect]
     Active Substance: METHYLPHENIDATE HYDROCHLORIDE
     Indication: DEPRESSION
     Dosage: 10 MG, QD
     Route: 048
  4. RIVOTRIL [Concomitant]
     Active Substance: CLONAZEPAM
     Indication: PRODUCT USED FOR UNKNOWN INDICATION
     Dosage: UNK
     Route: 065

REACTIONS (16)
  - Movement disorder [Unknown]
  - Anxiety [Unknown]
  - Depression [Unknown]
  - Liver injury [Unknown]
  - Drug hypersensitivity [Unknown]
  - Pain [Unknown]
  - Renal failure [Unknown]
  - Tooth loss [Unknown]
  - Product use in unapproved indication [Unknown]
  - Feeling abnormal [Unknown]
  - Acne [Unknown]
  - Drug dependence [Unknown]
  - Somnolence [Unknown]
  - Eye pain [Not Recovered/Not Resolved]
  - Eye disorder [Unknown]
  - Panic reaction [Unknown]

NARRATIVE: CASE EVENT DATE: 20130116
